FAERS Safety Report 7889679-X (Version None)
Quarter: 2011Q4

REPORT INFORMATION
  Report Type: 
  Country: None (occurrence: None)
  Receive Date: 20111103
  Receipt Date: 20111026
  Transmission Date: 20120403
  Serious: Yes (Other)
  Sender: FDA-Public Use
  Company Number: US-US-EMD SERONO, INC.-7067951

PATIENT
  Sex: Female
  Weight: 87 kg

DRUGS (7)
  1. REBIF [Suspect]
     Route: 058
  2. LAMICTAL [Concomitant]
     Indication: MOOD ALTERED
  3. XANAX [Concomitant]
     Indication: ANXIETY
  4. REBIF [Suspect]
     Indication: MULTIPLE SCLEROSIS
     Route: 058
     Dates: start: 20101022
  5. NEURONTIN [Concomitant]
     Indication: MULTIPLE SCLEROSIS
  6. MUSCLE RELAXANT [Concomitant]
     Indication: MULTIPLE SCLEROSIS
  7. PROZAC [Concomitant]
     Indication: DEPRESSION

REACTIONS (11)
  - WEIGHT DECREASED [None]
  - MULTIPLE SCLEROSIS [None]
  - TYPE 2 DIABETES MELLITUS [None]
  - HEPATIC CYST [None]
  - RENAL CYST [None]
  - CONVULSION [None]
  - INFLUENZA LIKE ILLNESS [None]
  - ECZEMA [None]
  - DECREASED APPETITE [None]
  - DEPRESSION [None]
  - DYSGEUSIA [None]
